FAERS Safety Report 7607953-9 (Version None)
Quarter: 2011Q3

REPORT INFORMATION
  Report Type: 
  Country: None (occurrence: None)
  Receive Date: 20110712
  Receipt Date: 20110712
  Transmission Date: 20111222
  Serious: Yes (Hospitalization)
  Sender: FDA-Public Use
  Company Number: None

PATIENT
  Age: 46 Year
  Sex: Male
  Weight: 91.5 kg

DRUGS (1)
  1. TRAMADOL HCL [Suspect]
     Indication: PAIN
     Dosage: 50 MG QID PO
     Route: 048
     Dates: start: 20110224, end: 20110228

REACTIONS (11)
  - OCCULT BLOOD POSITIVE [None]
  - HEPATIC ENZYME INCREASED [None]
  - PERONEAL NERVE INJURY [None]
  - SUBCLAVIAN ARTERY ANEURYSM [None]
  - ERECTILE DYSFUNCTION [None]
  - DEEP VEIN THROMBOSIS [None]
  - PERIPHERAL ARTERIAL OCCLUSIVE DISEASE [None]
  - HEPATITIS C VIRUS TEST POSITIVE [None]
  - EMBOLISM VENOUS [None]
  - CONVULSION [None]
  - DRUG DEPENDENCE [None]
